FAERS Safety Report 13602561 (Version 2)
Quarter: 2017Q2

REPORT INFORMATION
  Report Type: Spontaneous
  Country: FR (occurrence: FR)
  Receive Date: 20170601
  Receipt Date: 20170608
  Transmission Date: 20170830
  Serious: Yes (Death)
  Sender: FDA-Public Use
  Company Number: FR-PFIZER INC-2017239027

PATIENT

DRUGS (2)
  1. SERTRALINE [Suspect]
     Active Substance: SERTRALINE HYDROCHLORIDE
     Dosage: UNK
  2. DIAZEPAM. [Interacting]
     Active Substance: DIAZEPAM
     Dosage: UNK

REACTIONS (2)
  - Drug interaction [Fatal]
  - Hepatotoxicity [Fatal]
